FAERS Safety Report 9276433 (Version 2)
Quarter: 2013Q2

REPORT INFORMATION
  Report Type: Spontaneous
  Country: GB (occurrence: GB)
  Receive Date: 20130507
  Receipt Date: 20130528
  Transmission Date: 20140414
  Serious: Yes (Other)
  Sender: FDA-Public Use
  Company Number: GB-CELGENEUS-167-20785-13044641

PATIENT
  Age: 31 Year
  Sex: Male

DRUGS (1)
  1. THALIDOMIDE [Suspect]
     Indication: CROHN^S DISEASE
     Route: 048
     Dates: start: 2004, end: 20130425

REACTIONS (1)
  - Pregnancy of partner [Unknown]
